FAERS Safety Report 5731345-0 (Version None)
Quarter: 2008Q2

REPORT INFORMATION
  Report Type: 
  Country: None (occurrence: None)
  Receive Date: 20080506
  Receipt Date: 20080422
  Transmission Date: 20081010
  Serious: Yes (Other)
  Sender: FDA-Public Use
  Company Number: ENC200800088

PATIENT
  Age: 51 Year
  Sex: Female

DRUGS (21)
  1. ARGATROBAN [Suspect]
     Indication: HEPARIN-INDUCED THROMBOCYTOPENIA
     Dosage: 2 MCG/KG/MIN, INTRAVENOUS; 15 MCG/KG/MIN, INTRAVENOUS
     Route: 042
     Dates: start: 20080402
  2. NORVASC /00972401/ (AMLODIPINE) [Concomitant]
  3. HYDROMORPHONE HCL [Concomitant]
  4. MAGIC MOUTHWASH [Concomitant]
  5. GLUCOPHAGE /00082701/ (METFORMIN) [Concomitant]
  6. MULTIVITAMIN /00831701/ (VITAMINS NOS) [Concomitant]
  7. NOVOLOG [Concomitant]
  8. LANTUS [Concomitant]
  9. METAMUCIL /00607101/ (PLANTAGO OVATA) [Concomitant]
  10. LORTAB [Concomitant]
  11. ULTRAM [Concomitant]
  12. ZOFRAN /00955301/ (ONDANSETRON) [Concomitant]
  13. DUONEB [Concomitant]
  14. TOPROL-XL [Concomitant]
  15. ATIVAN [Concomitant]
  16. BENADRYL [Concomitant]
  17. BOWEL PREPS-FLEETS [Concomitant]
  18. BISACODYL (BISACODYL) [Concomitant]
  19. MOM (MAGNESIUM HYDROXIDE) [Concomitant]
  20. APAP (PARACETAMOL) [Concomitant]
  21. ASPIRIN [Concomitant]

REACTIONS (5)
  - ACTIVATED PARTIAL THROMBOPLASTIN TIME PROLONGED [None]
  - DRUG INEFFECTIVE [None]
  - DRUG RESISTANCE [None]
  - PLATELET DISORDER [None]
  - THROMBOSIS [None]
